FAERS Safety Report 25056612 (Version 1)
Quarter: 2025Q1

REPORT INFORMATION
  Report Type: Spontaneous
  Country: US (occurrence: US)
  Receive Date: 20250310
  Receipt Date: 20250310
  Transmission Date: 20250408
  Serious: No
  Sender: BAUSCH AND LOMB
  Company Number: US-BAUSCHBL-2025BNL003756

PATIENT
  Sex: Female

DRUGS (2)
  1. MIEBO [Suspect]
     Active Substance: PERFLUOROHEXYLOCTANE
     Indication: Product used for unknown indication
     Route: 047
  2. HUMAN SERUM, NORMAL [Concomitant]
     Active Substance: HUMAN SERUM, NORMAL
     Indication: Product used for unknown indication

REACTIONS (2)
  - Chest pain [Recovering/Resolving]
  - Dyspnoea [Recovering/Resolving]
